FAERS Safety Report 4994798-1 (Version None)
Quarter: 2006Q2

REPORT INFORMATION
  Report Type: 
  Country: None (occurrence: None)
  Receive Date: 20060503
  Receipt Date: 20060422
  Transmission Date: 20061013
  Serious: Yes (Other)
  Sender: FDA-Public Use
  Company Number: 2002073143

PATIENT
  Sex: Female

DRUGS (14)
  1. NEURONTIN [Suspect]
     Indication: NEURALGIA
     Dosage: 900 MG (100 MG, 1 IN D), ORAL
     Route: 048
  2. LYRICA [Suspect]
     Indication: RADICULOPATHY
     Dosage: 150 MG (75 MG, 2 IN 1 D)
     Dates: start: 20060420
  3. ELAVIL [Suspect]
     Indication: ILL-DEFINED DISORDER
     Dosage: 10 MG (1 D),ORAL
     Route: 048
     Dates: start: 19990101
  4. DARVOCET [Suspect]
     Indication: ILL-DEFINED DISORDER
  5. ATIVAN [Suspect]
     Indication: ANXIETY
     Dosage: 0.5 MG
  6. ZOCOR [Concomitant]
  7. METOPROLOL SUCCINATE [Concomitant]
  8. ESTRADIOL [Concomitant]
  9. PILOCARPINE (PILOCARPINE) [Concomitant]
  10. XALATAN [Concomitant]
  11. CALTRATE (CALCIUM CARBONATE) [Concomitant]
  12. VITAMIN E [Concomitant]
  13. VITAMIN C (VITAMIN C) [Concomitant]
  14. ACIDOPHILUS (LACTOBACILLUS ACIDOPHILUS) [Concomitant]

REACTIONS (16)
  - ABNORMAL BEHAVIOUR [None]
  - ASTHENIA [None]
  - BALANCE DISORDER [None]
  - DIZZINESS [None]
  - DRY MOUTH [None]
  - EUPHORIC MOOD [None]
  - FEELING ABNORMAL [None]
  - HYPOAESTHESIA [None]
  - INCORRECT DOSE ADMINISTERED [None]
  - MEMORY IMPAIRMENT [None]
  - NIGHTMARE [None]
  - PAIN [None]
  - SLUGGISHNESS [None]
  - SOMNOLENCE [None]
  - TREMOR [None]
  - WEIGHT INCREASED [None]
